FAERS Safety Report 7656529-6 (Version None)
Quarter: 2011Q3

REPORT INFORMATION
  Report Type: 
  Country: None (occurrence: None)
  Receive Date: 20110804
  Receipt Date: 20101026
  Transmission Date: 20111222
  Serious: No
  Sender: FDA-Public Use
  Company Number: US-BAUSCH-2010BL006066

PATIENT
  Age: 46 Year
  Sex: Female

DRUGS (3)
  1. MULTI-VITAMINS [Concomitant]
  2. OPCON-A [Suspect]
     Indication: OCULAR HYPERAEMIA
     Route: 047
     Dates: start: 20101026, end: 20101026
  3. OPCON-A [Suspect]
     Indication: EYE IRRITATION
     Route: 047
     Dates: start: 20101026, end: 20101026

REACTIONS (4)
  - DRUG ADMINISTRATION ERROR [None]
  - EXPIRED DRUG ADMINISTERED [None]
  - MYDRIASIS [None]
  - EYE PAIN [None]
